FAERS Safety Report 25088589 (Version 1)
Quarter: 2025Q1

REPORT INFORMATION
  Report Type: Spontaneous
  Country: US (occurrence: US)
  Receive Date: 20250318
  Receipt Date: 20250318
  Transmission Date: 20250408
  Serious: Yes (Other)
  Sender: BAYER HEALTHCARE PHARMACEUTICALS INC.
  Company Number: US-BAYER-2025A034142

PATIENT
  Age: 78 Year
  Sex: Female

DRUGS (13)
  1. ADEMPAS [Suspect]
     Active Substance: RIOCIGUAT
     Indication: Pulmonary hypertension
  2. ADEMPAS [Suspect]
     Active Substance: RIOCIGUAT
     Indication: Pulmonary hypertension
     Dosage: 0.5 MG, TID
     Route: 048
     Dates: start: 20180309
  3. FUROSEMIDE [Concomitant]
     Active Substance: FUROSEMIDE
  4. ALBUTEROL SULFATE [Concomitant]
     Active Substance: ALBUTEROL SULFATE
  5. PANTOPRAZOLE [Concomitant]
     Active Substance: PANTOPRAZOLE
  6. METFORMIN [Concomitant]
     Active Substance: METFORMIN HYDROCHLORIDE
  7. FAMOTIDINE [Concomitant]
     Active Substance: FAMOTIDINE
  8. ATORVASTATIN [Concomitant]
     Active Substance: ATORVASTATIN
  9. PRADAXA [Concomitant]
     Active Substance: DABIGATRAN ETEXILATE MESYLATE
  10. FLUCONAZOLE [Concomitant]
     Active Substance: FLUCONAZOLE
  11. LOSARTAN [Concomitant]
     Active Substance: LOSARTAN
  12. LEVOTHYROXINE [Concomitant]
     Active Substance: LEVOTHYROXINE
  13. PATADAY [Concomitant]
     Active Substance: OLOPATADINE HYDROCHLORIDE

REACTIONS (1)
  - Back pain [Recovering/Resolving]
